FAERS Safety Report 9693795 (Version 2)
Quarter: 2014Q1

REPORT INFORMATION
  Report Type: Spontaneous
  Country: IT (occurrence: IT)
  Receive Date: 20131118
  Receipt Date: 20140114
  Transmission Date: 20141002
  Serious: Yes (Other)
  Sender: FDA-Public Use
  Company Number: CHNY2013IT002509

PATIENT
  Age: 24 Year
  Sex: Male

DRUGS (2)
  1. IBUPROFEN [Suspect]
     Indication: PAIN
     Dosage: 1 DF, QD
     Route: 048
     Dates: start: 20131021, end: 20131022
  2. AMOXICILLIN TRIHYDRATE+POTASSIUM CLAVULANATE [Suspect]
     Indication: ANTIBIOTIC PROPHYLAXIS
     Dosage: 2 DF, QD
     Route: 048
     Dates: start: 20131021, end: 20131022

REACTIONS (3)
  - Dysphonia [Recovered/Resolved]
  - Palatal oedema [Recovered/Resolved]
  - Erythema [Recovered/Resolved]
